FAERS Safety Report 5318725-2 (Version None)
Quarter: 2007Q2

REPORT INFORMATION
  Report Type: 
  Country: None (occurrence: None)
  Receive Date: 20070503
  Receipt Date: 20070503
  Transmission Date: 20071010
  Serious: No
  Sender: FDA-Public Use
  Company Number: None

PATIENT
  Sex: Female

DRUGS (1)
  1. TRI-LEVLEN 28 [Suspect]
     Indication: CONTRACEPTION
     Dosage: ONE QD PO
     Route: 048

REACTIONS (4)
  - BACK PAIN [None]
  - HAEMORRHAGE [None]
  - MENORRHAGIA [None]
  - PHARMACEUTICAL PRODUCT COMPLAINT [None]
